FAERS Safety Report 21478380 (Version 1)
Quarter: 2022Q4

REPORT INFORMATION
  Report Type: Spontaneous
  Country: US (occurrence: None)
  Receive Date: 20221018
  Receipt Date: 20221018
  Transmission Date: 20230113
  Serious: Yes (unspecified)
  Sender: FDA-Public Use
  Company Number: None

PATIENT
  Age: 49 Year
  Sex: Female
  Weight: 96.7 kg

DRUGS (3)
  1. RITUXAN [Suspect]
     Active Substance: RITUXIMAB
     Indication: Acute myeloid leukaemia
     Dosage: FREQUENCY : ONCE;?
     Route: 041
     Dates: start: 20221013, end: 20221013
  2. Diphenhydramine 25 mg IVP [Concomitant]
     Dates: start: 20221013, end: 20221013
  3. Hydrocortisone 100 mg IVP [Concomitant]
     Dates: start: 20221013, end: 20221013

REACTIONS (3)
  - Ear pruritus [None]
  - Dysphagia [None]
  - Infusion related reaction [None]

NARRATIVE: CASE EVENT DATE: 20221013
